FAERS Safety Report 25642215 (Version 3)
Quarter: 2025Q4

REPORT INFORMATION
  Report Type: Spontaneous
  Country: CA (occurrence: CA)
  Receive Date: 20250805
  Receipt Date: 20251003
  Transmission Date: 20260117
  Serious: Yes (Hospitalization, Disabling, Other)
  Sender: Haleon PLC
  Company Number: CA-002147023-NVSC2020CA067701

PATIENT
  Age: 68 Year
  Sex: Female

DRUGS (120)
  1. VOLTAREN [Suspect]
     Active Substance: DICLOFENAC SODIUM
     Indication: Product used for unknown indication
     Dosage: UNK
     Route: 048
  2. VOLTAREN [Suspect]
     Active Substance: DICLOFENAC SODIUM
     Dosage: UNK (EXPRESS)
     Route: 048
  3. VOLTAREN [Suspect]
     Active Substance: DICLOFENAC SODIUM
     Dosage: UNK, QD
     Route: 048
  4. VOLTAREN [Suspect]
     Active Substance: DICLOFENAC SODIUM
     Dosage: UNK
     Route: 048
  5. DICLOFENAC [Suspect]
     Active Substance: DICLOFENAC
     Indication: Product used for unknown indication
     Dosage: UNK, PATIENT ROA: UNKNOWN
  6. DICLOFENAC [Suspect]
     Active Substance: DICLOFENAC
     Dosage: 1 DF, QD (1 EVERY 1 DAYS)
     Route: 048
  7. DICLOFENAC [Suspect]
     Active Substance: DICLOFENAC
     Dosage: 2 DF, QD
     Route: 048
  8. DICLOFENAC [Suspect]
     Active Substance: DICLOFENAC
     Dosage: 75 MG, BID (2 EVERY 1 DAYS)
     Route: 048
  9. DICLOFENAC [Suspect]
     Active Substance: DICLOFENAC
     Dosage: UNK
     Route: 048
  10. DICLOFENAC [Suspect]
     Active Substance: DICLOFENAC
     Dosage: 75 MG, BID (2 EVERY 1 DAYS)
     Route: 048
  11. VOLTAREN [Suspect]
     Active Substance: DICLOFENAC SODIUM
     Indication: Product used for unknown indication
     Dosage: UNK
     Route: 048
  12. VOLTAREN [Suspect]
     Active Substance: DICLOFENAC SODIUM
     Indication: Rheumatoid arthritis
     Dosage: UNK
     Route: 048
  13. VOLTAREN [Suspect]
     Active Substance: DICLOFENAC SODIUM
     Dosage: 75 MG, BID (2 EVERY 1 DAYS)
     Route: 048
  14. VOLTAREN [Suspect]
     Active Substance: DICLOFENAC SODIUM
     Route: 048
  15. VOLTAREN [Suspect]
     Active Substance: DICLOFENAC SODIUM
     Dosage: 75 MG
     Route: 048
  16. VOLTAREN [Suspect]
     Active Substance: DICLOFENAC SODIUM
     Dosage: 75 MG, BID, POWDER FOR SOLUTION ORAL
     Route: 048
  17. VOLTAREN [Suspect]
     Active Substance: DICLOFENAC SODIUM
     Dosage: 75 MG
     Route: 048
  18. VOLTAREN [Suspect]
     Active Substance: DICLOFENAC SODIUM
     Dosage: UNK
     Route: 048
  19. VOLTAREN [Suspect]
     Active Substance: DICLOFENAC SODIUM
     Dosage: 150 MG PATIENT ROA: UNKNOWN
  20. DICLOFENAC POTASSIUM [Suspect]
     Active Substance: DICLOFENAC POTASSIUM
     Indication: Product used for unknown indication
     Dosage: 75 MG, BID, PATIENT ROA: UNKNOWN
     Route: 048
  21. DICLOFENAC POTASSIUM [Suspect]
     Active Substance: DICLOFENAC POTASSIUM
     Indication: Rheumatoid arthritis
     Dosage: UNK
     Route: 048
  22. DICLOFENAC POTASSIUM [Suspect]
     Active Substance: DICLOFENAC POTASSIUM
     Dosage: 75 MG, BID
  23. DICLOFENAC POTASSIUM [Suspect]
     Active Substance: DICLOFENAC POTASSIUM
     Dosage: UNK
     Route: 048
  24. DICLOFENAC POTASSIUM [Suspect]
     Active Substance: DICLOFENAC POTASSIUM
     Dosage: 75 MG, QD
     Route: 048
  25. DICLOFENAC POTASSIUM [Suspect]
     Active Substance: DICLOFENAC POTASSIUM
     Dosage: 2 DOSAGE FORM, QD
  26. DICLOFENAC SODIUM [Suspect]
     Active Substance: DICLOFENAC SODIUM
     Indication: Product used for unknown indication
     Dosage: 75 MG, BID, PATIENT ROA: UNKNOWN
  27. DICLOFENAC SODIUM [Suspect]
     Active Substance: DICLOFENAC SODIUM
     Dosage: 150 MG, QD, PATIENT ROA: UNKNOWN
  28. SULFASALAZINE [Suspect]
     Active Substance: SULFASALAZINE
     Indication: Rheumatoid arthritis
     Dosage: 2 MG, QD (1 EVERY 1 DAYS)
     Route: 048
  29. SULFASALAZINE [Suspect]
     Active Substance: SULFASALAZINE
     Dosage: 1 G, BID (2 EVERY 1 DAYS)
     Route: 048
  30. SULFASALAZINE [Suspect]
     Active Substance: SULFASALAZINE
     Dosage: 2 DOSAGE FORM, QD (1GRAM)
     Route: 048
  31. SULFASALAZINE [Suspect]
     Active Substance: SULFASALAZINE
     Dosage: 2 G, QD (1 EVERY 1 DAYS)
     Route: 048
  32. SULFASALAZINE [Suspect]
     Active Substance: SULFASALAZINE
     Dosage: 1 DOSAGE FORM, QD (500MG) PATIENT ROA: UNKNOWN
  33. SULFASALAZINE [Suspect]
     Active Substance: SULFASALAZINE
     Dosage: 500 MG, QD (1 EVERY 1 DAYS)
     Route: 048
  34. PANTOPRAZOLE [Suspect]
     Active Substance: PANTOPRAZOLE
     Indication: Rheumatoid arthritis
     Dosage: UNK
     Route: 048
  35. PANTOPRAZOLE [Suspect]
     Active Substance: PANTOPRAZOLE
     Dosage: UNK
  36. PANTOPRAZOLE [Suspect]
     Active Substance: PANTOPRAZOLE
     Dosage: UNK
     Route: 048
  37. PANTOPRAZOLE [Suspect]
     Active Substance: PANTOPRAZOLE
     Dosage: UNK
     Route: 048
  38. PANTOPRAZOLE [Suspect]
     Active Substance: PANTOPRAZOLE
     Dosage: UNK
     Route: 048
  39. PANTOPRAZOLE [Suspect]
     Active Substance: PANTOPRAZOLE
     Dosage: UNK
     Route: 048
  40. PANTOPRAZOLE [Suspect]
     Active Substance: PANTOPRAZOLE
     Dosage: UNK
     Route: 048
  41. FOLIC ACID [Suspect]
     Active Substance: FOLIC ACID
     Indication: Rheumatoid arthritis
     Dosage: UNK, PATIENT ROA: UNKNOWN
  42. FOLIC ACID [Suspect]
     Active Substance: FOLIC ACID
     Dosage: UNK, PATIENT ROA: UNKNOWN
  43. XELJANZ [Suspect]
     Active Substance: TOFACITINIB CITRATE
     Indication: Rheumatoid arthritis
     Dosage: UNK
     Route: 048
  44. XELJANZ [Suspect]
     Active Substance: TOFACITINIB CITRATE
     Dosage: 5 MG, QD
  45. XELJANZ [Suspect]
     Active Substance: TOFACITINIB CITRATE
     Dosage: 5 MG, BID (2 EVERY 1 DAYS)
     Route: 048
  46. XELJANZ [Suspect]
     Active Substance: TOFACITINIB CITRATE
     Dosage: UNK, QD (1 EVERY 1 DAYS)
     Route: 048
  47. XELJANZ [Suspect]
     Active Substance: TOFACITINIB CITRATE
     Dosage: 10 MG, QD (1 EVERY 1 DAYS)
     Route: 048
  48. XELJANZ [Suspect]
     Active Substance: TOFACITINIB CITRATE
     Dosage: 50 MG, BID
     Route: 048
  49. XELJANZ [Suspect]
     Active Substance: TOFACITINIB CITRATE
     Dosage: UNK
     Route: 048
  50. XELJANZ [Suspect]
     Active Substance: TOFACITINIB CITRATE
     Dosage: 50 MG, BID
     Route: 048
  51. METHYLPREDNISOLONE [Concomitant]
     Active Substance: METHYLPREDNISOLONE
     Indication: Product used for unknown indication
     Dosage: UNK PATIENT ROA: UNKNOWN
  52. METHYLPREDNISOLONE [Concomitant]
     Active Substance: METHYLPREDNISOLONE
     Dosage: UNK PATIENT ROA: UNKNOWN
  53. METHYLPREDNISOLONE [Concomitant]
     Active Substance: METHYLPREDNISOLONE
     Dosage: UNK PATIENT ROA: UNKNOWN
  54. METHYLPREDNISOLONE [Concomitant]
     Active Substance: METHYLPREDNISOLONE
     Dosage: UNK PATIENT ROA: UNKNOWN
  55. HYDROXYCHLOROQUINE SULFATE [Suspect]
     Active Substance: HYDROXYCHLOROQUINE SULFATE
     Indication: Rheumatoid arthritis
     Dosage: 1 DF, QD (1 EVERY 1 DAYS)
     Route: 048
  56. HYDROXYCHLOROQUINE SULFATE [Suspect]
     Active Substance: HYDROXYCHLOROQUINE SULFATE
     Dosage: 200 MG, QD (1 EVERY 1 DAYS)
     Route: 048
  57. HYDROXYCHLOROQUINE SULFATE [Suspect]
     Active Substance: HYDROXYCHLOROQUINE SULFATE
     Dosage: UNK
     Route: 048
  58. HYDROXYCHLOROQUINE SULFATE [Suspect]
     Active Substance: HYDROXYCHLOROQUINE SULFATE
     Dosage: UNK, QD PATIENT ROA: UNKNOWN
  59. HYDROXYCHLOROQUINE SULFATE [Suspect]
     Active Substance: HYDROXYCHLOROQUINE SULFATE
     Dosage: UNK
     Route: 048
  60. HYDROXYCHLOROQUINE SULFATE [Suspect]
     Active Substance: HYDROXYCHLOROQUINE SULFATE
     Dosage: UNK
     Route: 048
  61. SYNTHROID [Suspect]
     Active Substance: LEVOTHYROXINE SODIUM
     Indication: Rheumatoid arthritis
     Dosage: UNK
  62. SYNTHROID [Suspect]
     Active Substance: LEVOTHYROXINE SODIUM
     Indication: Product used for unknown indication
     Dosage: UNK, PATIENT ROA: UNKNOWN
  63. SYNTHROID [Suspect]
     Active Substance: LEVOTHYROXINE SODIUM
     Dosage: UNK, PATIENT ROA: UNKNOWN
  64. LEVOTHYROXINE SODIUM [Suspect]
     Active Substance: LEVOTHYROXINE SODIUM
     Indication: Product used for unknown indication
     Dosage: UNK PATIENT ROA: UNKNOWN
  65. LEVOTHYROXINE SODIUM [Suspect]
     Active Substance: LEVOTHYROXINE SODIUM
     Indication: Rheumatoid arthritis
     Dosage: UNK PATIENT ROA: UNKNOWN
  66. LEVOTHYROXINE SODIUM [Suspect]
     Active Substance: LEVOTHYROXINE SODIUM
     Dosage: UNK PATIENT ROA: UNKNOWN
  67. LEVOTHYROXINE SODIUM [Suspect]
     Active Substance: LEVOTHYROXINE SODIUM
     Dosage: UNK PATIENT ROA: UNKNOWN
  68. GOLD SODIUM THIOMALATE [Suspect]
     Active Substance: GOLD SODIUM THIOMALATE
     Indication: Rheumatoid arthritis
     Dosage: UNK, PATIENT ROA: UNKNOWN
  69. GOLD SODIUM THIOMALATE [Suspect]
     Active Substance: GOLD SODIUM THIOMALATE
     Dosage: 2 MG, QD (1 EVERY 1 DAYS)
     Route: 048
  70. PLAQUENIL [Suspect]
     Active Substance: HYDROXYCHLOROQUINE SULFATE
     Indication: Rheumatoid arthritis
     Dosage: 200 MG, QD (1 EVERY 1 DAYS)
     Route: 048
  71. PLAQUENIL [Suspect]
     Active Substance: HYDROXYCHLOROQUINE SULFATE
     Dosage: 1 DF, QD (1 EVERY 1 DAYS)
     Route: 048
  72. PLAQUENIL [Suspect]
     Active Substance: HYDROXYCHLOROQUINE SULFATE
     Dosage: 400 MG, QD (1 EVERY 1 DAYS)
     Route: 048
  73. PLAQUENIL [Suspect]
     Active Substance: HYDROXYCHLOROQUINE SULFATE
     Dosage: UNK, QD
     Route: 048
  74. PANTOPRAZOLE MAGNESIUM [Suspect]
     Active Substance: PANTOPRAZOLE MAGNESIUM
     Indication: Product used for unknown indication
     Dosage: UNK, PATIENT ROA: UNKNOWN
  75. PANTOPRAZOLE MAGNESIUM [Suspect]
     Active Substance: PANTOPRAZOLE MAGNESIUM
     Indication: Rheumatoid arthritis
     Dosage: UNK, PATIENT ROA: UNKNOWN
  76. PANTOPRAZOLE MAGNESIUM [Suspect]
     Active Substance: PANTOPRAZOLE MAGNESIUM
     Dosage: UNK,
     Route: 048
  77. PANTOPRAZOLE MAGNESIUM [Suspect]
     Active Substance: PANTOPRAZOLE MAGNESIUM
     Dosage: UNK ((TABLET (ENTERIC- COATED)
     Route: 048
  78. DICLOFENAC [Suspect]
     Active Substance: DICLOFENAC
     Indication: Product used for unknown indication
     Dosage: UNK, QD
     Route: 048
  79. DICLOFENAC [Suspect]
     Active Substance: DICLOFENAC
     Route: 048
  80. DICLOFENAC [Suspect]
     Active Substance: DICLOFENAC
     Route: 048
  81. DICLOFENAC [Suspect]
     Active Substance: DICLOFENAC
     Route: 048
  82. DICLOFENAC [Suspect]
     Active Substance: DICLOFENAC
     Route: 048
  83. METHOTREXATE [Suspect]
     Active Substance: METHOTREXATE
     Indication: Rheumatoid arthritis
     Dosage: 20 MG, QD (1 EVERY 1 DAYS) PATIENT ROA: SUBCUTANEOUS
     Route: 058
  84. METHOTREXATE [Suspect]
     Active Substance: METHOTREXATE
     Indication: Product used for unknown indication
     Dosage: 200 MG, QD (1 EVERY 1 DAYS) PATIENT ROA: SUBCUTANEOUS
     Route: 058
  85. METHOTREXATE [Suspect]
     Active Substance: METHOTREXATE
     Dosage: 1 DF, QW PATIENT ROA: SUBCUTANEOUS
     Route: 058
  86. METHOTREXATE [Suspect]
     Active Substance: METHOTREXATE
     Dosage: 20 MG, QD (1 EVERY 1 DAYS) PATIENT ROA: SUBCUTANEOUS
     Route: 058
  87. METHOTREXATE [Suspect]
     Active Substance: METHOTREXATE
     Dosage: 1 DF, QW PATIENT ROA: SUBCUTANEOUS
     Route: 058
  88. METHOTREXATE [Suspect]
     Active Substance: METHOTREXATE
     Dosage: 20 MG, QW (1 EVERY 1 WEEK) PATIENT ROA: SUBCUTANEOUS
     Route: 058
  89. METHOTREXATE [Suspect]
     Active Substance: METHOTREXATE
     Dosage: 200 MG, QD (1 EVERY 1 DAYS) PATIENT ROA: SUBCUTANEOUS
     Route: 058
  90. LISINOPRIL [Suspect]
     Active Substance: LISINOPRIL
     Indication: Product used for unknown indication
     Dosage: UNK
     Route: 050
  91. LISINOPRIL [Suspect]
     Active Substance: LISINOPRIL
     Indication: Rheumatoid arthritis
     Dosage: UNK PATIENT ROA: UNKNOWN
  92. LISINOPRIL [Suspect]
     Active Substance: LISINOPRIL
     Dosage: UNK
     Route: 048
  93. CAMBIA [Suspect]
     Active Substance: DICLOFENAC POTASSIUM
     Indication: Product used for unknown indication
     Dosage: UNK (POWDER FOR SOLUTION ORAL)
     Route: 048
  94. CAMBIA [Suspect]
     Active Substance: DICLOFENAC POTASSIUM
     Dosage: 75 MG, BID (2 EVERY 1 DAYS)
     Route: 048
  95. CAMBIA [Suspect]
     Active Substance: DICLOFENAC POTASSIUM
     Dosage: 150 MG, QD PATIENT ROA: UNKNOWN
  96. CAMBIA [Suspect]
     Active Substance: DICLOFENAC POTASSIUM
     Dosage: UNK, QD
     Route: 048
  97. CAMBIA [Suspect]
     Active Substance: DICLOFENAC POTASSIUM
     Route: 048
  98. CAMBIA [Suspect]
     Active Substance: DICLOFENAC POTASSIUM
     Dosage: 75 MG, BID (2 EVERY 1 DAYS)
     Route: 048
  99. LISINOPRIL [Suspect]
     Active Substance: LISINOPRIL
     Indication: Product used for unknown indication
     Dosage: UNK
     Route: 048
  100. LISINOPRIL [Suspect]
     Active Substance: LISINOPRIL
     Indication: Rheumatoid arthritis
     Dosage: UNK PATIENT ROA: UNKNOWN
  101. LISINOPRIL [Suspect]
     Active Substance: LISINOPRIL
     Dosage: UNK PATIENT ROA: UNKNOWN
  102. METHYLPREDNISOLONE ACETATE [Concomitant]
     Active Substance: METHYLPREDNISOLONE ACETATE
     Indication: Product used for unknown indication
     Dosage: UNK PATIENT ROA: INTRAMUSCULAR
     Route: 030
  103. METHYLPREDNISOLONE ACETATE [Concomitant]
     Active Substance: METHYLPREDNISOLONE ACETATE
     Dosage: UNK PATIENT ROA: UNKNOWN
  104. METHYLPREDNISOLONE ACETATE [Concomitant]
     Active Substance: METHYLPREDNISOLONE ACETATE
     Dosage: UNK PATIENT ROA: UNKNOWN
  105. METHYLPREDNISOLONE ACETATE [Concomitant]
     Active Substance: METHYLPREDNISOLONE ACETATE
     Dosage: UNK PATIENT ROA: UNKNOWN
  106. METHYLPREDNISOLONE ACETATE [Concomitant]
     Active Substance: METHYLPREDNISOLONE ACETATE
     Dosage: UNK PATIENT ROA: INTRAMUSCULAR
     Route: 030
  107. METHYLPREDNISOLONE ACETATE [Concomitant]
     Active Substance: METHYLPREDNISOLONE ACETATE
     Dosage: UNK PATIENT ROA: INTRAMUSCULAR
     Route: 030
  108. GOLD [Concomitant]
     Active Substance: GOLD
     Indication: Product used for unknown indication
     Dosage: UNK, PATIENT ROA: UNKNOWN
  109. DEPO-MEDROL [Concomitant]
     Active Substance: METHYLPREDNISOLONE ACETATE
     Indication: Product used for unknown indication
     Dosage: UNK PATIENT ROA: INTRAMUSCULAR USE, UNK (SUSPENSION INTRA- ARTICULAR)
     Route: 030
  110. DICLOFENAC SODIUM [Suspect]
     Active Substance: DICLOFENAC SODIUM
     Indication: Product used for unknown indication
     Dosage: 75 MG, BID (2 EVERY 1 DAYS)
     Route: 048
  111. DICLOFENAC SODIUM [Suspect]
     Active Substance: DICLOFENAC SODIUM
     Dosage: PATIENT ROA: UNKNOWN
  112. VOLTAREN [Suspect]
     Active Substance: DICLOFENAC SODIUM
     Indication: Product used for unknown indication
     Dosage: 74 MG, BID (TABLET (EXTENDED- RELEASE) PATIENT ROA: UNKNOWN
  113. VOLTAREN [Suspect]
     Active Substance: DICLOFENAC SODIUM
     Dosage: 2 DOSAGE FORM, QD (75 MG)
     Route: 048
  114. VOLTAREN [Suspect]
     Active Substance: DICLOFENAC SODIUM
     Dosage: UNK
     Route: 048
  115. DICLOFENAC SODIUM [Suspect]
     Active Substance: DICLOFENAC SODIUM
     Indication: Product used for unknown indication
     Dosage: DOSE FORM: TOPICAL
     Route: 048
  116. DICLOFENAC SODIUM [Suspect]
     Active Substance: DICLOFENAC SODIUM
     Dosage: DOSE FORM: TOPICAL
     Route: 048
  117. DICLOFENAC SODIUM [Suspect]
     Active Substance: DICLOFENAC SODIUM
     Indication: Product used for unknown indication
  118. DICLOFENAC SODIUM [Suspect]
     Active Substance: DICLOFENAC SODIUM
  119. DICLOFENAC SODIUM [Suspect]
     Active Substance: DICLOFENAC SODIUM
     Indication: Product used for unknown indication
     Dosage: DOSE FORM: TOPICAL
     Route: 048
  120. DICLOFENAC SODIUM [Suspect]
     Active Substance: DICLOFENAC SODIUM
     Dosage: ALSO REPORTED AS TOPICAL (SOLUTION)
     Route: 048

REACTIONS (17)
  - Rheumatoid arthritis [Not Recovered/Not Resolved]
  - Tenderness [Not Recovered/Not Resolved]
  - Grip strength decreased [Not Recovered/Not Resolved]
  - Product use issue [Unknown]
  - Joint swelling [Not Recovered/Not Resolved]
  - Contusion [Not Recovered/Not Resolved]
  - Illness [Not Recovered/Not Resolved]
  - Spinal stenosis [Not Recovered/Not Resolved]
  - Off label use [Unknown]
  - Treatment failure [Not Recovered/Not Resolved]
  - Loss of personal independence in daily activities [Unknown]
  - Fatigue [Not Recovered/Not Resolved]
  - Pain [Not Recovered/Not Resolved]
  - Fall [Not Recovered/Not Resolved]
  - Malaise [Not Recovered/Not Resolved]
  - Osteoarthritis [Not Recovered/Not Resolved]
  - Condition aggravated [Not Recovered/Not Resolved]
